FAERS Safety Report 25153392 (Version 2)
Quarter: 2025Q2

REPORT INFORMATION
  Report Type: Spontaneous
  Country: ES (occurrence: ES)
  Receive Date: 20250403
  Receipt Date: 20250411
  Transmission Date: 20250716
  Serious: Yes (Other)
  Sender: ALKEM
  Company Number: None

PATIENT
  Age: 56 Year
  Sex: Male

DRUGS (9)
  1. MINOCYCLINE [Suspect]
     Active Substance: MINOCYCLINE HYDROCHLORIDE
     Indication: Lepromatous leprosy
     Route: 065
  2. SIROLIMUS [Suspect]
     Active Substance: SIROLIMUS
     Indication: Immunosuppressant drug therapy
     Route: 065
  3. SIROLIMUS [Suspect]
     Active Substance: SIROLIMUS
     Route: 065
  4. TACROLIMUS [Suspect]
     Active Substance: TACROLIMUS
     Indication: Immunosuppressant drug therapy
     Route: 065
  5. CLOFAZIMINE [Suspect]
     Active Substance: CLOFAZIMINE
     Indication: Lepromatous leprosy
     Route: 065
  6. NORFLOXACIN [Suspect]
     Active Substance: NORFLOXACIN
     Indication: Lepromatous leprosy
     Route: 065
  7. PREDNISONE [Suspect]
     Active Substance: PREDNISONE
     Indication: Immunosuppressant drug therapy
     Dosage: 30 MILLIGRAM, QD (DAILY)
     Route: 065
  8. PREDNISONE [Suspect]
     Active Substance: PREDNISONE
     Indication: Type 2 lepra reaction
     Route: 065
  9. PREDNISONE [Suspect]
     Active Substance: PREDNISONE
     Route: 065

REACTIONS (2)
  - Type 2 lepra reaction [Recovering/Resolving]
  - Lepromatous leprosy [Recovering/Resolving]

NARRATIVE: CASE EVENT DATE: 20220901
